FAERS Safety Report 9404498 (Version 11)
Quarter: 2015Q3

REPORT INFORMATION
  Report Type: Spontaneous
  Country: US (occurrence: US)
  Receive Date: 20130717
  Receipt Date: 20150814
  Transmission Date: 20151125
  Serious: Yes (Hospitalization, Other)
  Sender: FDA-Public Use
  Company Number: US-PFIZER INC-2013205625

PATIENT
  Age: 68 Year
  Sex: Male
  Weight: 68.48 kg

DRUGS (13)
  1. SUTENT [Suspect]
     Active Substance: SUNITINIB MALATE
     Dosage: 12.5 MG, UNK
  2. SUTENT [Suspect]
     Active Substance: SUNITINIB MALATE
     Dosage: 12.5 MG, UNK
     Dates: end: 20140402
  3. BENAZEPRIL [Concomitant]
     Active Substance: BENAZEPRIL HYDROCHLORIDE
     Dosage: UNK
  4. METOPROLOL [Concomitant]
     Active Substance: METOPROLOL
     Dosage: UNK
  5. NORCO [Concomitant]
     Active Substance: ACETAMINOPHEN\HYDROCODONE BITARTRATE
     Dosage: UNK
  6. SUTENT [Suspect]
     Active Substance: SUNITINIB MALATE
     Dosage: 25 MG, UNK
     Dates: end: 20131004
  7. SIMVASTATIN. [Concomitant]
     Active Substance: SIMVASTATIN
     Dosage: UNK
  8. NTG [Concomitant]
     Active Substance: NITROGLYCERIN
     Dosage: UNK, AS NEEDED (PRN)
  9. SUTENT [Suspect]
     Active Substance: SUNITINIB MALATE
     Indication: RENAL CANCER METASTATIC
     Dosage: 50 MG, UNK
     Dates: start: 2013, end: 20130722
  10. ISOSORBIDE. [Concomitant]
     Active Substance: ISOSORBIDE
     Dosage: UNK
  11. ASPIRIN. [Concomitant]
     Active Substance: ASPIRIN
     Dosage: 81 MG, UNK
  12. SUTENT [Suspect]
     Active Substance: SUNITINIB MALATE
     Dosage: 12.5 MG, CYCLIC
     Dates: end: 20140301
  13. COMPAZINE [Concomitant]
     Active Substance: PROCHLORPERAZINE MALEATE
     Dosage: UNK

REACTIONS (17)
  - Decreased appetite [Unknown]
  - Vomiting [Not Recovered/Not Resolved]
  - Dry mouth [Unknown]
  - Disease progression [Unknown]
  - Ageusia [Unknown]
  - Fatigue [Unknown]
  - Platelet count decreased [Unknown]
  - Oral discomfort [Unknown]
  - Renal impairment [Unknown]
  - Lentigo [Unknown]
  - Diarrhoea [Unknown]
  - Dehydration [Unknown]
  - Weight decreased [Unknown]
  - Gastrooesophageal reflux disease [Unknown]
  - Renal cancer metastatic [Unknown]
  - Retching [Not Recovered/Not Resolved]
  - Heart sounds abnormal [Unknown]
